FAERS Safety Report 19855733 (Version 1)
Quarter: 2021Q3

REPORT INFORMATION
  Report Type: Spontaneous
  Country: CN (occurrence: CN)
  Receive Date: 20210920
  Receipt Date: 20210920
  Transmission Date: 20211014
  Serious: Yes (Other)
  Sender: FDA-Public Use
  Company Number: CN-BAXTER-2021BAX029034

PATIENT
  Age: 59 Year
  Sex: Female

DRUGS (6)
  1. 0.9% SODIUM CHLORIDE INJECTION [Suspect]
     Active Substance: SODIUM CHLORIDE
     Indication: MEDICATION DILUTION
     Dosage: CYCLOPHOSPHAMIDE FOR INJECTION 1G + 0.9% SODIUM CHLORIDE INJECTION 250ML
     Route: 041
     Dates: start: 20210616, end: 20210616
  2. EPIRUBICIN HYDROCHLORIDE. [Suspect]
     Active Substance: EPIRUBICIN HYDROCHLORIDE
     Indication: NON-HODGKIN^S LYMPHOMA
     Dosage: EPIRUBICIN HYDROCHLORIDE FOR INJECTION 100 MG + 5% GLUCOSE INJECTION 250ML
     Route: 041
     Dates: start: 20210616, end: 20210616
  3. 0.9% SODIUM CHLORIDE INJECTION [Suspect]
     Active Substance: SODIUM CHLORIDE
     Dosage: VINDESINE SULFATE FOR INJECTION 4 MG + 0.9% SODIUM CHLORIDE INJECTION
     Route: 041
     Dates: start: 20210616, end: 20210616
  4. ENDOXAN [Suspect]
     Active Substance: CYCLOPHOSPHAMIDE
     Indication: NON-HODGKIN^S LYMPHOMA
     Dosage: CYCLOPHOSPHAMIDE FOR INJECTION 1G + 0.9% SODIUM CHLORIDE INJECTION 250ML
     Route: 041
     Dates: start: 20210616, end: 20210616
  5. 5% GLUCOSE  INJECTION [Suspect]
     Active Substance: DEXTROSE
     Indication: MEDICATION DILUTION
     Dosage: EPIRUBICIN HYDROCHLORIDE FOR INJECTION 100 MG + 5% GLUCOSE INJECTION 250ML
     Route: 041
     Dates: start: 20210616, end: 20210616
  6. VINDESINE SULFATE [Suspect]
     Active Substance: VINDESINE SULFATE
     Indication: NON-HODGKIN^S LYMPHOMA
     Dosage: VINDESINE SULFATE FOR INJECTION 4 MG + 0.9% SODIUM CHLORIDE INJECTION
     Route: 041
     Dates: start: 20210616, end: 20210616

REACTIONS (2)
  - Neutropenia [Recovering/Resolving]
  - Thrombocytopenia [Recovering/Resolving]

NARRATIVE: CASE EVENT DATE: 20210624
